FAERS Safety Report 7785715-X (Version None)
Quarter: 2011Q3

REPORT INFORMATION
  Report Type: 
  Country: None (occurrence: None)
  Receive Date: 20110929
  Receipt Date: 20110926
  Transmission Date: 20111222
  Serious: Yes (Other)
  Sender: FDA-Public Use
  Company Number: GB-ABBOTT-11P-167-0841245-00

PATIENT
  Age: 63 Year
  Sex: Female

DRUGS (3)
  1. PREGABALIN [Concomitant]
     Indication: PRODUCT USED FOR UNKNOWN INDICATION
     Dates: start: 20100301
  2. VALPROIC ACID [Suspect]
     Indication: HEADACHE
     Route: 048
     Dates: start: 20100406
  3. DIAZIDE [Concomitant]
     Indication: PRODUCT USED FOR UNKNOWN INDICATION

REACTIONS (4)
  - DEAFNESS NEUROSENSORY [None]
  - HEARING IMPAIRED [None]
  - ORAL DISCOMFORT [None]
  - TINNITUS [None]
